FAERS Safety Report 9742669 (Version 1)
Quarter: 2013Q4

REPORT INFORMATION
  Report Type: Spontaneous
  Country: US (occurrence: US)
  Receive Date: 20131210
  Receipt Date: 20131210
  Transmission Date: 20140711
  Serious: No
  Sender: FDA-Public Use
  Company Number: US-GILEAD-2009-0025300

PATIENT
  Age: 74 Year
  Sex: Female

DRUGS (5)
  1. LETAIRIS [Suspect]
     Indication: PULMONARY HYPERTENSION
     Route: 048
     Dates: start: 20090330
  2. COUMADIN [Concomitant]
  3. VITAMIN B COMPLEX [Concomitant]
  4. CITRACAL [Concomitant]
  5. ZYRTEC [Concomitant]

REACTIONS (2)
  - Hypoaesthesia [Not Recovered/Not Resolved]
  - Sinusitis [Not Recovered/Not Resolved]
